FAERS Safety Report 25996087 (Version 1)
Quarter: 2025Q4

REPORT INFORMATION
  Report Type: Report from Study
  Country: US (occurrence: US)
  Receive Date: 20251104
  Receipt Date: 20251104
  Transmission Date: 20260117
  Serious: Yes (Other)
  Sender: TAKEDA
  Company Number: US-TAKEDA-2017TUS011856

PATIENT
  Age: 50 Year
  Sex: Female

DRUGS (3)
  1. VEDOLIZUMAB [Suspect]
     Active Substance: VEDOLIZUMAB
     Dosage: UNK
  2. VEDOLIZUMAB [Suspect]
     Active Substance: VEDOLIZUMAB
     Indication: Colitis ulcerative
     Dosage: 108 MILLIGRAM, Q2WEEKS
  3. VEDOLIZUMAB [Suspect]
     Active Substance: VEDOLIZUMAB

REACTIONS (34)
  - Angioedema [Unknown]
  - Thrombocytopenia [Unknown]
  - Hypokalaemia [Unknown]
  - Crohn^s disease [Unknown]
  - Muscle atrophy [Unknown]
  - Overweight [Unknown]
  - Vulvovaginal pruritus [Unknown]
  - Heterogeneously dense breasts [Unknown]
  - Hypovitaminosis [Unknown]
  - Vitamin B12 deficiency [Unknown]
  - Vitamin D deficiency [Unknown]
  - Obesity [Unknown]
  - Rhinitis allergic [Unknown]
  - Diarrhoea [Unknown]
  - Migraine with aura [Unknown]
  - Essential hypertension [Unknown]
  - Blood urine present [Unknown]
  - Endometrial thickening [Unknown]
  - Gastrooesophageal reflux disease [Unknown]
  - Hypercholesterolaemia [Unknown]
  - Cough [Unknown]
  - Neck pain [Unknown]
  - Asthma [Unknown]
  - Acute stress disorder [Unknown]
  - Anxiety [Unknown]
  - Hyperhidrosis [Unknown]
  - Electrocardiogram abnormal [Unknown]
  - Muscle spasms [Unknown]
  - Haemorrhoids [Unknown]
  - Sinusitis [Unknown]
  - Bronchitis [Unknown]
  - Upper respiratory tract infection [Recovering/Resolving]
  - Nausea [Unknown]
  - Arthralgia [Unknown]

NARRATIVE: CASE EVENT DATE: 20170503
